FAERS Safety Report 21435455 (Version 1)
Quarter: 2022Q4

REPORT INFORMATION
  Report Type: Spontaneous
  Country: CA (occurrence: CA)
  Receive Date: 20221010
  Receipt Date: 20221010
  Transmission Date: 20230113
  Serious: Yes (Other)
  Sender: FDA-Public Use
  Company Number: CA-NOVARTISPH-NVSC2020CA356407

PATIENT
  Age: 44 Year
  Sex: Female

DRUGS (13)
  1. COLCHICINE [Suspect]
     Active Substance: COLCHICINE
     Indication: Aphthous ulcer
     Dosage: 0.6 MG, QD
     Route: 065
  2. MORPHINE [Suspect]
     Active Substance: MORPHINE
     Indication: Product used for unknown indication
     Dosage: 30 MG
     Route: 065
  3. ETANERCEPT [Suspect]
     Active Substance: ETANERCEPT
     Indication: Aphthous ulcer
     Dosage: UNK
     Route: 065
  4. AZATHIOPRINE [Suspect]
     Active Substance: AZATHIOPRINE
     Indication: Product used for unknown indication
     Dosage: 150 MG, QD
     Route: 065
  5. AZATHIOPRINE [Suspect]
     Active Substance: AZATHIOPRINE
     Dosage: UNK
     Route: 065
  6. CODEINE [Suspect]
     Active Substance: CODEINE
     Indication: Product used for unknown indication
     Dosage: UNK
     Route: 065
  7. DAPSONE [Suspect]
     Active Substance: DAPSONE
     Indication: Aphthous ulcer
     Dosage: UNK
     Route: 065
  8. DOMPERIDONE [Suspect]
     Active Substance: DOMPERIDONE
     Indication: Product used for unknown indication
     Dosage: 20 MG, QD
     Route: 065
  9. GRAVOL [Suspect]
     Active Substance: DIMENHYDRINATE
     Indication: Product used for unknown indication
     Dosage: 50 MG
     Route: 065
  10. INFLIXIMAB [Suspect]
     Active Substance: INFLIXIMAB
     Indication: Aphthous ulcer
     Dosage: UNK MG
     Route: 065
  11. RABEPRAZOLE SODIUM [Suspect]
     Active Substance: RABEPRAZOLE SODIUM
     Indication: Product used for unknown indication
     Dosage: 20 MG, BID
     Route: 065
  12. REMICADE [Suspect]
     Active Substance: INFLIXIMAB
     Indication: Behcet^s syndrome
     Dosage: UNK
     Route: 042
  13. SUCRALFATE [Suspect]
     Active Substance: SUCRALFATE
     Indication: Product used for unknown indication
     Dosage: UNK
     Route: 048

REACTIONS (3)
  - Aphthous ulcer [Unknown]
  - Behcet^s syndrome [Unknown]
  - Therapy non-responder [Unknown]
